FAERS Safety Report 4913176-4 (Version None)
Quarter: 2006Q1

REPORT INFORMATION
  Report Type: 
  Country: None (occurrence: None)
  Receive Date: 20060215
  Receipt Date: 20051004
  Transmission Date: 20060701
  Serious: Yes (Hospitalization, Other)
  Sender: FDA-Public Use
  Company Number: US-MERCK-0510USA02290

PATIENT
  Age: 61 Year
  Sex: Male
  Weight: 90 kg

DRUGS (11)
  1. VIOXX [Suspect]
     Indication: ARTHRITIS
     Route: 048
     Dates: start: 20020202, end: 20040901
  2. ZITHROMAX [Concomitant]
     Route: 065
  3. TUSSIONEX (CHLORPHENIRAMINE POLISTIREX (+) HYDROCODONE POLISTIREX) [Concomitant]
     Route: 065
  4. MECLIZINE HYDROCHLORIDE [Concomitant]
     Route: 065
  5. HYDROCODONE BITARTRATE + ACETAMINOPHEN [Concomitant]
     Route: 065
  6. TRAMADOL HYDROCHLORIDE [Concomitant]
     Route: 065
  7. LISINOPRIL [Concomitant]
     Route: 065
  8. NITROQUICK [Concomitant]
     Route: 065
  9. CEFACLOR [Concomitant]
     Route: 065
  10. PLAVIX [Concomitant]
     Route: 065
  11. DIFLUNISAL [Concomitant]
     Route: 065

REACTIONS (13)
  - ACUTE MYOCARDIAL INFARCTION [None]
  - ANEURYSM [None]
  - AORTIC ANEURYSM [None]
  - ARTERIOPATHIC DISEASE [None]
  - ARTERIOSCLEROSIS CORONARY ARTERY [None]
  - BLUE TOE SYNDROME [None]
  - CEREBROVASCULAR ACCIDENT [None]
  - CORONARY ARTERY DISEASE [None]
  - PERIPHERAL ARTERY ANEURYSM [None]
  - PNEUMONIA [None]
  - THROMBOCYTOPENIA [None]
  - THROMBOSIS [None]
  - TRANSIENT ISCHAEMIC ATTACK [None]
